FAERS Safety Report 13576554 (Version 1)
Quarter: 2017Q2

REPORT INFORMATION
  Report Type: Spontaneous
  Country: FR (occurrence: FR)
  Receive Date: 20170524
  Receipt Date: 20170524
  Transmission Date: 20170830
  Serious: Yes (Hospitalization)
  Sender: FDA-Public Use
  Company Number: FR-TEVA-769455ROM

PATIENT
  Sex: Female

DRUGS (2)
  1. SIMVASTATINE TEVA TABLET FILMOMHULD 40MG [Suspect]
     Active Substance: SIMVASTATIN
     Dates: end: 201604
  2. SIMVASTATINE TEVA TABLET FILMOMHULD 40MG [Suspect]
     Active Substance: SIMVASTATIN
     Dosage: TWO OR THREE MONTHS AFTER OPERATION

REACTIONS (3)
  - Weight decreased [Not Recovered/Not Resolved]
  - Pulmonary mass [Not Recovered/Not Resolved]
  - Sensation of foreign body [Unknown]
